FAERS Safety Report 4752081-3 (Version None)
Quarter: 2005Q3

REPORT INFORMATION
  Report Type: 
  Country: None (occurrence: None)
  Receive Date: 20050824
  Receipt Date: 20050714
  Transmission Date: 20060218
  Serious: Yes (Hospitalization)
  Sender: FDA-Public Use
  Company Number: DE-MERCK-0507DEU00111

PATIENT
  Age: 45 Year
  Sex: Male

DRUGS (11)
  1. VYTORIN [Suspect]
     Indication: HYPERLIPIDAEMIA
     Route: 048
     Dates: start: 20040101
  2. VYTORIN [Suspect]
     Indication: CORONARY ARTERY DISEASE
     Route: 048
     Dates: start: 20040101
  3. ATAZANAVIR SULFATE [Suspect]
     Indication: HIV INFECTION
     Route: 048
     Dates: start: 20050201
  4. RITONAVIR [Concomitant]
     Indication: HIV INFECTION
     Route: 048
     Dates: start: 20050201
  5. SAQUINAVIR MESYLATE [Concomitant]
     Indication: HIV INFECTION
     Route: 048
     Dates: start: 20050201
  6. LAMIVUDINE AND ZIDOVUDINE [Concomitant]
     Indication: HIV INFECTION
     Route: 048
     Dates: start: 20050201
  7. ASPIRIN [Concomitant]
     Route: 048
  8. CARVEDILOL [Concomitant]
     Route: 048
  9. CLOPIDOGREL BISULFATE [Concomitant]
     Route: 048
  10. TORSEMIDE [Concomitant]
     Route: 048
  11. MOXONIDINE [Concomitant]
     Route: 048

REACTIONS (1)
  - GRANULOMATOUS LIVER DISEASE [None]
